FAERS Safety Report 18911327 (Version 1)
Quarter: 2021Q1

REPORT INFORMATION
  Report Type: Spontaneous
  Country: US (occurrence: US)
  Receive Date: 20210218
  Receipt Date: 20210218
  Transmission Date: 20210420
  Serious: Yes (Other)
  Sender: FDA-Public Use
  Company Number: US-MYLANLABS-2021M1010336

PATIENT
  Age: 42 Year
  Sex: Female

DRUGS (1)
  1. FLUOROURACIL. [Suspect]
     Active Substance: FLUOROURACIL
     Indication: RECTAL CANCER
     Dosage: ADMINISTERED AS INFUSION BOLUS

REACTIONS (2)
  - Arteriospasm coronary [Recovered/Resolved]
  - Electrocardiogram ST segment elevation [Recovered/Resolved]
